FAERS Safety Report 8176531-8 (Version None)
Quarter: 2012Q1

REPORT INFORMATION
  Report Type: 
  Country: None (occurrence: None)
  Receive Date: 20120301
  Receipt Date: 20120228
  Transmission Date: 20120608
  Serious: Yes (Other)
  Sender: FDA-Public Use
  Company Number: US-PFIZER INC-2012053415

PATIENT
  Sex: Female
  Weight: 84.8 kg

DRUGS (8)
  1. SYNTHROID [Concomitant]
     Indication: THYROID DISORDER
     Dosage: 150 UG,DAILY
  2. PROTONIX [Suspect]
     Indication: GASTROOESOPHAGEAL REFLUX DISEASE
  3. PROCARDIA XL [Concomitant]
     Indication: HYPERTENSION
     Dosage: UNK
  4. PRAVASTATIN [Concomitant]
     Indication: BLOOD CHOLESTEROL INCREASED
     Dosage: 40 MG,DAILY
  5. ASPIRIN [Suspect]
     Dosage: UNK
  6. DIOVAN [Concomitant]
     Indication: HYPERTENSION
     Dosage: 160 MG,DAILY
  7. PROTONIX [Suspect]
     Indication: HIATUS HERNIA
     Dosage: 40 MG,DAILY
  8. WARFARIN [Concomitant]
     Indication: ANTICOAGULANT THERAPY
     Dosage: 5 MG,DAILY

REACTIONS (2)
  - GASTRIC HAEMORRHAGE [None]
  - CARDIAC OPERATION [None]
